FAERS Safety Report 18273177 (Version 4)
Quarter: 2020Q4

REPORT INFORMATION
  Report Type: Spontaneous
  Country: US (occurrence: US)
  Receive Date: 20200916
  Receipt Date: 20201106
  Transmission Date: 20210113
  Serious: Yes (Other)
  Sender: FDA-Public Use
  Company Number: US-PFIZER INC-2020356425

PATIENT
  Sex: Female

DRUGS (2)
  1. ADVIL [Suspect]
     Active Substance: IBUPROFEN
     Indication: BACK PAIN
  2. ADVIL [Suspect]
     Active Substance: IBUPROFEN
     Indication: NECK INJURY
     Dosage: UNK
     Dates: start: 201701, end: 201706

REACTIONS (1)
  - Glomerulonephritis membranous [Recovering/Resolving]

NARRATIVE: CASE EVENT DATE: 201711
